FAERS Safety Report 20414511 (Version 2)
Quarter: 2022Q2

REPORT INFORMATION
  Report Type: Spontaneous
  Country: IN (occurrence: IN)
  Receive Date: 20220202
  Receipt Date: 20220516
  Transmission Date: 20220721
  Serious: Yes (Hospitalization, Other)
  Sender: FDA-Public Use
  Company Number: IN-CIPLA LTD.-2022IN00461

PATIENT

DRUGS (4)
  1. PREGABALIN [Suspect]
     Active Substance: PREGABALIN
     Indication: Neuralgia
     Dosage: 75 MILLIGRAM, UNK
     Route: 065
  2. PREGABALIN [Suspect]
     Active Substance: PREGABALIN
     Dosage: 20 DOSAGE FORM, QD (EQUIVALENT TO1500 MG) AT IRREGULAR INTERVALS PER DAY OVER THE PERIOD OF 1 YEAR
     Route: 065
  3. PREGABALIN [Suspect]
     Active Substance: PREGABALIN
     Dosage: 40 DOSAGE FORM, QD (EQUIVALENT TO 3000 MG)
     Route: 065
  4. PREGABALIN [Suspect]
     Active Substance: PREGABALIN
     Dosage: 75 MILLIGRAM, QOD (EVERY ALTERNATE DAY)
     Route: 065

REACTIONS (15)
  - Intentional self-injury [Unknown]
  - Behaviour disorder [Recovered/Resolved]
  - Mental disorder [Recovered/Resolved]
  - Feelings of worthlessness [Recovered/Resolved]
  - Dysphoria [Recovered/Resolved]
  - Suicide attempt [Unknown]
  - Anxiety [Recovered/Resolved]
  - Drug dependence [Unknown]
  - Suicidal ideation [Recovered/Resolved]
  - Drug abuse [Unknown]
  - Palpitations [Unknown]
  - Energy increased [Unknown]
  - Restlessness [Unknown]
  - Withdrawal syndrome [Unknown]
  - Euphoric mood [Unknown]
